FAERS Safety Report 4381180-3 (Version None)
Quarter: 2004Q2

REPORT INFORMATION
  Report Type: 
  Country: None (occurrence: None)
  Receive Date: 20040617
  Receipt Date: 20040617
  Transmission Date: 20050107
  Serious: Yes (Hospitalization)
  Sender: FDA-Public Use
  Company Number: None

PATIENT
  Age: 83 Year
  Sex: Male
  Weight: 83.9154 kg

DRUGS (1)
  1. AVELOX [Suspect]
     Indication: RESPIRATORY TRACT INFECTION
     Dosage: 1  DAILY
     Dates: start: 20031123, end: 20031201

REACTIONS (3)
  - HEART RATE DECREASED [None]
  - HYPOKINESIA [None]
  - SLUGGISHNESS [None]
